FAERS Safety Report 5928590-8 (Version None)
Quarter: 2008Q4

REPORT INFORMATION
  Report Type: 
  Country: None (occurrence: None)
  Receive Date: 20081023
  Receipt Date: 20081008
  Transmission Date: 20090506
  Serious: Yes (Death, Hospitalization)
  Sender: FDA-Public Use
  Company Number: GB-GENENTECH-269582

PATIENT

DRUGS (1)
  1. LUCENTIS [Suspect]
     Indication: MACULAR DEGENERATION
     Dosage: UNK MG/ML, UNK
     Route: 031
     Dates: start: 20080525

REACTIONS (2)
  - DEATH [None]
  - PERIPHERAL ISCHAEMIA [None]
